FAERS Safety Report 4530728-4 (Version None)
Quarter: 2004Q4

REPORT INFORMATION
  Report Type: 
  Country: None (occurrence: None)
  Receive Date: 20041217
  Receipt Date: 20041209
  Transmission Date: 20050328
  Serious: Yes (Hospitalization)
  Sender: FDA-Public Use
  Company Number: JP-GLAXOSMITHKLINE-B0360621A

PATIENT
  Age: 29 Year
  Sex: Female

DRUGS (7)
  1. PAXIL [Suspect]
     Indication: DEPRESSION
     Dosage: 10MG PER DAY
     Route: 048
     Dates: start: 20040922
  2. TOLEDOMIN [Concomitant]
     Route: 048
     Dates: start: 20041006
  3. LORAZEPAM [Concomitant]
     Route: 048
     Dates: start: 20040922
  4. SEDIEL [Concomitant]
     Route: 048
     Dates: start: 20041002
  5. DOGMATYL [Concomitant]
     Route: 048
     Dates: start: 20041020
  6. SELBEX [Concomitant]
     Dosage: 1.5G PER DAY
     Route: 048
     Dates: start: 20041028
  7. GANATON [Concomitant]
     Dosage: 3U PER DAY
     Route: 048
     Dates: start: 20041028

REACTIONS (3)
  - HYPERTHERMIA [None]
  - HYPOXIA [None]
  - PNEUMONIA [None]
